FAERS Safety Report 10229633 (Version 1)
Quarter: 2014Q2

REPORT INFORMATION
  Report Type: Spontaneous
  Country: US (occurrence: None)
  Receive Date: 20140609
  Receipt Date: 20140609
  Transmission Date: 20141212
  Serious: Yes (Hospitalization)
  Sender: FDA-Public Use
  Company Number: SYM-2014-21678

PATIENT
  Age: 52 Year
  Sex: Male

DRUGS (4)
  1. XENAZINE [Suspect]
     Indication: HUNTINGTON^S DISEASE
     Dosage: TAKE TWO TABLETS IN THE MORNING AND ONE TABLET NIGHTLY, ORAL
     Route: 048
     Dates: start: 20140107
  2. CLONAZEPAM (CLONAZEPAM) [Concomitant]
  3. ZOLOFT (SERTRALINE HYDROCHLORIDE) (SERTRALINE HYDROCHLORIDE) [Concomitant]
  4. RISPERDAL [Concomitant]

REACTIONS (1)
  - Investigation [None]
